FAERS Safety Report 18883487 (Version 13)
Quarter: 2023Q1

REPORT INFORMATION
  Report Type: Report from Study
  Country: JP (occurrence: JP)
  Receive Date: 20210212
  Receipt Date: 20230221
  Transmission Date: 20230417
  Serious: Yes (Other)
  Sender: FDA-Public Use
  Company Number: NVSJ2021JP002153

PATIENT
  Age: 74 Year
  Sex: Female

DRUGS (4)
  1. TABRECTA [Suspect]
     Active Substance: CAPMATINIB
     Indication: Lung adenocarcinoma
     Dosage: 800 MG
     Route: 048
     Dates: start: 20200916, end: 20201228
  2. TABRECTA [Suspect]
     Active Substance: CAPMATINIB
     Dosage: 800 MG
     Route: 048
     Dates: start: 20210108
  3. TABRECTA [Suspect]
     Active Substance: CAPMATINIB
     Dosage: 600 MG
     Route: 048
  4. TABRECTA [Suspect]
     Active Substance: CAPMATINIB
     Dosage: 400 MG
     Route: 048
     Dates: end: 202201

REACTIONS (12)
  - Deafness neurosensory [Recovered/Resolved]
  - Non-small cell lung cancer stage IIIA [Unknown]
  - Malignant neoplasm progression [Unknown]
  - Gastroenteritis [Recovering/Resolving]
  - Stomatitis [Recovering/Resolving]
  - Decreased appetite [Recovered/Resolved]
  - Malaise [Recovered/Resolved]
  - Generalised oedema [Recovered/Resolved]
  - Rash [Recovered/Resolved]
  - Dizziness [Recovered/Resolved]
  - Oedema peripheral [Unknown]
  - Vomiting [Recovered/Resolved]

NARRATIVE: CASE EVENT DATE: 20200917
